FAERS Safety Report 9768334 (Version 1)
Quarter: 2013Q4

REPORT INFORMATION
  Report Type: Spontaneous
  Country: US (occurrence: US)
  Receive Date: 20131217
  Receipt Date: 20131217
  Transmission Date: 20140711
  Serious: No
  Sender: FDA-Public Use
  Company Number: US-MYLANLABS-2013S1007076

PATIENT
  Age: 78 Year
  Sex: Female
  Weight: 72.58 kg

DRUGS (6)
  1. OXYBUTYNIN CHLORIDE EXTENDED-RELEASE [Suspect]
     Indication: MICTURITION URGENCY
     Route: 048
     Dates: start: 201208
  2. OXYBUTYNIN CHLORIDE EXTENDED-RELEASE [Suspect]
     Indication: POLLAKIURIA
     Route: 048
     Dates: start: 201208
  3. LOSARTAN POTASSIUM TABLETS USP [Suspect]
     Indication: BLOOD PRESSURE INCREASED
     Route: 048
     Dates: start: 201208
  4. LIPITOR [Concomitant]
     Indication: BLOOD CHOLESTEROL INCREASED
  5. SYNTHROID [Concomitant]
     Indication: HYPOTHYROIDISM
  6. CORGARD [Concomitant]
     Indication: HEART RATE IRREGULAR

REACTIONS (2)
  - Oesophageal spasm [Not Recovered/Not Resolved]
  - Dyspepsia [Not Recovered/Not Resolved]
